FAERS Safety Report 6675258-9 (Version None)
Quarter: 2010Q2

REPORT INFORMATION
  Report Type: 
  Country: None (occurrence: None)
  Receive Date: 20100409
  Receipt Date: 20091214
  Transmission Date: 20101027
  Serious: No
  Sender: FDA-Public Use
  Company Number: A0835651A

PATIENT
  Age: 67 Year
  Sex: Female

DRUGS (1)
  1. TYKERB [Suspect]
     Indication: DRUG USE FOR UNKNOWN INDICATION
     Dosage: 1000MGD PER DAY
     Route: 048
     Dates: start: 20091207

REACTIONS (4)
  - DYSPNOEA [None]
  - FATIGUE [None]
  - FEAR [None]
  - VOMITING [None]
